FAERS Safety Report 7937560-X (Version None)
Quarter: 2011Q4

REPORT INFORMATION
  Report Type: 
  Country: None (occurrence: None)
  Receive Date: 20111123
  Receipt Date: 20111120
  Transmission Date: 20120403
  Serious: Yes (Other)
  Sender: FDA-Public Use
  Company Number: ES-ELI_LILLY_AND_COMPANY-ES201111006555

PATIENT
  Age: 64 Year
  Sex: Male

DRUGS (1)
  1. ALIMTA [Suspect]
     Indication: LUNG NEOPLASM MALIGNANT
     Dosage: UNK, MONTHLY (1/M)
     Route: 042

REACTIONS (2)
  - DYSPNOEA [None]
  - MALAISE [None]
